FAERS Safety Report 24424795 (Version 2)
Quarter: 2025Q1

REPORT INFORMATION
  Report Type: Spontaneous
  Country: GB (occurrence: GB)
  Receive Date: 20241010
  Receipt Date: 20250312
  Transmission Date: 20250409
  Serious: Yes (Other)
  Sender: TEVA
  Company Number: GB-TEVA-VS-3211119

PATIENT
  Sex: Male

DRUGS (22)
  1. ACITRETIN [Suspect]
     Active Substance: ACITRETIN
     Indication: Psoriasis
     Route: 065
  2. ACITRETIN [Suspect]
     Active Substance: ACITRETIN
     Indication: Psoriasis
     Route: 048
  3. COCODAMOL [Suspect]
     Active Substance: ACETAMINOPHEN\CODEINE PHOSPHATE
     Indication: Product used for unknown indication
     Route: 048
  4. COCODAMOL [Suspect]
     Active Substance: ACETAMINOPHEN\CODEINE PHOSPHATE
     Indication: Product used for unknown indication
     Dosage: DAILYDOSE:6.00000 DOSE UNIT:DOSAGE FORM
     Route: 048
  5. CYCLOSPORINE [Suspect]
     Active Substance: CYCLOSPORINE
     Indication: Psoriasis
     Route: 065
  6. CYCLOSPORINE [Suspect]
     Active Substance: CYCLOSPORINE
     Indication: Psoriasis
     Route: 065
  7. CYCLOSPORINE [Suspect]
     Active Substance: CYCLOSPORINE
     Indication: Psoriasis
     Dosage: UNK
     Route: 048
  8. HYDROXYUREA [Suspect]
     Active Substance: HYDROXYUREA
     Indication: Psoriasis
     Route: 065
  9. STELARA [Suspect]
     Active Substance: USTEKINUMAB
     Indication: Psoriasis
     Route: 065
  10. BETAMETHASONE DIPROPIONATE\CALCIPOTRIENE MONOHYDRATE [Suspect]
     Active Substance: BETAMETHASONE DIPROPIONATE\CALCIPOTRIENE MONOHYDRATE
     Indication: Product used for unknown indication
     Route: 065
  11. BETAMETHASONE DIPROPIONATE\CALCIPOTRIENE MONOHYDRATE [Suspect]
     Active Substance: BETAMETHASONE DIPROPIONATE\CALCIPOTRIENE MONOHYDRATE
     Indication: Product used for unknown indication
     Route: 065
  12. METHOTREXATE [Suspect]
     Active Substance: METHOTREXATE
     Indication: Psoriasis
     Route: 065
  13. ACETAMINOPHEN\CODEINE PHOSPHATE [Suspect]
     Active Substance: ACETAMINOPHEN\CODEINE PHOSPHATE
     Indication: Product used for unknown indication
     Dosage: 2 DOSAGE FORM, ONCE DAILY (QD)
     Route: 065
  14. ACETAMINOPHEN\CODEINE PHOSPHATE [Suspect]
     Active Substance: ACETAMINOPHEN\CODEINE PHOSPHATE
     Indication: Product used for unknown indication
     Route: 065
  15. ACETAMINOPHEN\CODEINE PHOSPHATE [Suspect]
     Active Substance: ACETAMINOPHEN\CODEINE PHOSPHATE
     Indication: Product used for unknown indication
     Dosage: 6 DOSAGE FORM, ONCE DAILY (QD)
     Route: 065
  16. COSENTYX [Suspect]
     Active Substance: SECUKINUMAB
     Indication: Product used for unknown indication
     Dosage: DOSAGE TEXT: 300 MG MONTHLY
     Route: 058
  17. COSENTYX [Suspect]
     Active Substance: SECUKINUMAB
     Indication: Product used for unknown indication
     Route: 058
  18. HUMIRA [Suspect]
     Active Substance: ADALIMUMAB
     Indication: Psoriasis
     Route: 065
  19. DAIVOBET [Suspect]
     Active Substance: BETAMETHASONE DIPROPIONATE\CALCIPOTRIENE
     Indication: Product used for unknown indication
     Route: 065
  20. SECUKINUMAB [Suspect]
     Active Substance: SECUKINUMAB
     Indication: Product used for unknown indication
     Dosage: 300 MG, QMO (MONTHLY)
     Route: 058
  21. SECUKINUMAB [Suspect]
     Active Substance: SECUKINUMAB
     Indication: Product used for unknown indication
     Dosage: 300 MG, QMO (MONTHLY)
     Route: 058
  22. SECUKINUMAB [Suspect]
     Active Substance: SECUKINUMAB
     Indication: Product used for unknown indication
     Route: 058

REACTIONS (9)
  - Skin hyperpigmentation [Unknown]
  - Wheezing [Unknown]
  - Rash pruritic [Unknown]
  - Therapeutic product effect incomplete [Unknown]
  - Pruritus genital [Unknown]
  - Chest pain [Unknown]
  - Burning sensation [Unknown]
  - Drug ineffective [Unknown]
  - Hypertension [Unknown]
